FAERS Safety Report 25022974 (Version 2)
Quarter: 2025Q2

REPORT INFORMATION
  Report Type: Spontaneous
  Country: CA (occurrence: CA)
  Receive Date: 20250228
  Receipt Date: 20250408
  Transmission Date: 20250716
  Serious: Yes (Hospitalization)
  Sender: TAKEDA
  Company Number: CA-TAKEDA-2025TUS019660

PATIENT
  Age: 8 Year
  Sex: Female
  Weight: 22 kg

DRUGS (7)
  1. LISDEXAMFETAMINE DIMESYLATE [Interacting]
     Active Substance: LISDEXAMFETAMINE DIMESYLATE
     Indication: Attention deficit hyperactivity disorder
     Dosage: 40 MILLIGRAM, QD
  2. AMITRIPTYLINE [Interacting]
     Active Substance: AMITRIPTYLINE
     Indication: Abdominal pain
     Dosage: 10 MILLIGRAM, QD
  3. AMITRIPTYLINE [Interacting]
     Active Substance: AMITRIPTYLINE
     Dosage: UNK UNK, QD
     Dates: start: 20240421, end: 20240430
  4. ACETAMINOPHEN [Concomitant]
     Active Substance: ACETAMINOPHEN
     Dosage: 325 MILLIGRAM, Q6HR
     Dates: start: 20240430, end: 20240503
  5. FAMOTIDINE [Concomitant]
     Active Substance: FAMOTIDINE
     Dosage: 20 MILLIGRAM, QD
  6. IBUPROFEN [Concomitant]
     Active Substance: IBUPROFEN
     Dosage: 220 MILLIGRAM
  7. MELATONIN [Concomitant]
     Active Substance: MELATONIN
     Dates: start: 20240430, end: 20240502

REACTIONS (6)
  - Abdominal pain [Unknown]
  - Chest pain [Unknown]
  - Drug interaction [Unknown]
  - Malaise [Unknown]
  - Palpitations [Unknown]
  - Tachycardia [Recovered/Resolved]

NARRATIVE: CASE EVENT DATE: 20240429
